FAERS Safety Report 23352472 (Version 1)
Quarter: 2023Q4

REPORT INFORMATION
  Report Type: Spontaneous
  Country: ES (occurrence: ES)
  Receive Date: 20231229
  Receipt Date: 20231229
  Transmission Date: 20240109
  Serious: Yes (Other)
  Sender: FDA-Public Use
  Company Number: ES-Merz Pharmaceuticals GmbH-23-04011

PATIENT
  Age: 41 Year
  Sex: Male

DRUGS (21)
  1. BOTOX [Suspect]
     Active Substance: ONABOTULINUMTOXINA
     Indication: Migraine
     Dosage: TIME INTERVAL: AS NECESSARY
     Route: 065
  2. PAROXETINE [Suspect]
     Active Substance: PAROXETINE
     Indication: Migraine
     Route: 065
  3. PREDNISONE [Suspect]
     Active Substance: PREDNISONE
     Indication: Migraine
     Route: 065
  4. VOLTAREN [Suspect]
     Active Substance: DICLOFENAC SODIUM
     Indication: Migraine
     Route: 065
  5. CAFFEINE [Suspect]
     Active Substance: CAFFEINE
     Indication: Migraine
     Route: 065
  6. ZOMIG [Suspect]
     Active Substance: ZOLMITRIPTAN
     Indication: Migraine
     Route: 065
  7. MAXALT [Suspect]
     Active Substance: RIZATRIPTAN BENZOATE
     Indication: Migraine
     Route: 065
  8. ACETAMINOPHEN [Suspect]
     Active Substance: ACETAMINOPHEN
     Indication: Migraine
     Route: 065
  9. LAMOTRIGINE [Suspect]
     Active Substance: LAMOTRIGINE
     Indication: Migraine
     Route: 065
  10. RELPAX [Suspect]
     Active Substance: ELETRIPTAN HYDROBROMIDE
     Indication: Migraine
     Route: 065
  11. VALPROATE [Suspect]
     Active Substance: VALPROIC ACID
     Indication: Migraine
     Route: 065
  12. ERGOTAMINE [Suspect]
     Active Substance: CAFFEINE\ERGOTAMINE\ERGOTAMINE TARTRATE
     Indication: Migraine
     Route: 065
  13. ATROPA BELLADONNA\HOMEOPATHICS [Suspect]
     Active Substance: ATROPA BELLADONNA\HOMEOPATHICS
     Indication: Migraine
     Route: 065
  14. BROMAZEPAM [Suspect]
     Active Substance: BROMAZEPAM
     Indication: Migraine
     Route: 065
  15. XEOMIN [Suspect]
     Active Substance: INCOBOTULINUMTOXINA
     Indication: Migraine
     Dosage: TIME INTERVAL: TOTAL
     Route: 065
     Dates: start: 200902, end: 200902
  16. TRYPTIZOL [Suspect]
     Active Substance: AMITRIPTYLINE HYDROCHLORIDE
     Indication: Migraine
     Route: 065
  17. FLUNARIZINE [Suspect]
     Active Substance: FLUNARIZINE
     Indication: Migraine
     Route: 065
  18. METAMIZOLE [Suspect]
     Active Substance: METAMIZOLE
     Indication: Migraine
     Route: 065
  19. METAMIZOLE [Suspect]
     Active Substance: METAMIZOLE
     Indication: Migraine
     Route: 065
  20. IBUPROFEN [Suspect]
     Active Substance: IBUPROFEN
     Indication: Migraine
     Route: 065
  21. TOPIRAMATE [Suspect]
     Active Substance: TOPIRAMATE
     Indication: Migraine
     Route: 065

REACTIONS (7)
  - Insomnia [Unknown]
  - Off label use [Unknown]
  - Product use in unapproved indication [Unknown]
  - Therapy partial responder [Unknown]
  - Drug abuse [Unknown]
  - Intentional product misuse [Unknown]
  - Paraesthesia [Unknown]

NARRATIVE: CASE EVENT DATE: 20090201
